FAERS Safety Report 8977812 (Version 1)
Quarter: 2012Q4

REPORT INFORMATION
  Report Type: 
  Country: JP (occurrence: JP)
  Receive Date: 20121220
  Receipt Date: 20121220
  Transmission Date: 20130627
  Serious: Yes (Other)
  Sender: FDA-Public Use
  Company Number: JP-TEVA-375084ISR

PATIENT
  Age: 62 Year
  Sex: Female

DRUGS (1)
  1. CETIRIZINE HCL [Suspect]

REACTIONS (1)
  - Drug-induced liver injury [Unknown]
